FAERS Safety Report 8108788-3 (Version None)
Quarter: 2012Q1

REPORT INFORMATION
  Report Type: 
  Country: None (occurrence: None)
  Receive Date: 20120202
  Receipt Date: 20120116
  Transmission Date: 20120608
  Serious: No
  Sender: FDA-Public Use
  Company Number: US-AMGEN-USASP2012002941

PATIENT
  Age: 45 Year
  Sex: Female

DRUGS (1)
  1. ENBREL [Suspect]
     Indication: RHEUMATOID ARTHRITIS
     Dosage: 50 MG, QWK
     Dates: start: 20020101, end: 20110501

REACTIONS (8)
  - FEELING ABNORMAL [None]
  - JOINT CREPITATION [None]
  - FATIGUE [None]
  - JOINT SWELLING [None]
  - ARTHRALGIA [None]
  - NAUSEA [None]
  - ABDOMINAL DISCOMFORT [None]
  - ANAEMIA [None]
